FAERS Safety Report 12863449 (Version 1)
Quarter: 2016Q4

REPORT INFORMATION
  Report Type: Spontaneous
  Country: FR (occurrence: FR)
  Receive Date: 20161019
  Receipt Date: 20161019
  Transmission Date: 20170207
  Serious: Yes (Other)
  Sender: FDA-Public Use
  Company Number: FR-PFIZER INC-2016472870

PATIENT
  Age: 74 Year
  Sex: Male

DRUGS (14)
  1. LOPRESSOR [Concomitant]
     Active Substance: METOPROLOL TARTRATE
     Dosage: 200 MG, 1X/DAY, EVENING
  2. CALDINE /01102601/ [Concomitant]
     Active Substance: LACIDIPINE
     Dosage: 4 MG, 1X/DAY, EVENING
  3. DIPIPERON [Concomitant]
     Active Substance: PIPAMPERONE
     Dosage: 20 MG, 1X/DAY,  0.5 DOSE FORM DAILY (EVENING)
  4. RAMIPRIL. [Concomitant]
     Active Substance: RAMIPRIL
     Dosage: 5 MG, 1X/DAY, EVENING
  5. LAROXYL [Concomitant]
     Active Substance: AMITRIPTYLINE
     Dosage: 25 GTT, 1X/DAY, EVENING
  6. PRAVASTATIN. [Concomitant]
     Active Substance: PRAVASTATIN
     Dosage: 20 MG, 1X/DAY, MIDDAY
  7. VESICARE [Concomitant]
     Active Substance: SOLIFENACIN SUCCINATE
     Dosage: 5 MG, 1X/DAY, EVENING
  8. AMAREL [Concomitant]
     Active Substance: GLIMEPIRIDE
     Dosage: 4 MG, 1X/DAY, MORNING
  9. DALACINE [Suspect]
     Active Substance: CLINDAMYCIN HYDROCHLORIDE
     Indication: ERYSIPELAS
     Dosage: 300 MG 6 TIMES DAILY
     Dates: start: 20160904, end: 20160909
  10. INIPOMP [Concomitant]
     Active Substance: PANTOPRAZOLE SODIUM
     Dosage: 20 MG, 1X/DAY, MIDDAY
  11. LEVOTHYROX [Concomitant]
     Active Substance: LEVOTHYROXINE
     Dosage: 100 UG, 1X/DAY, MORNING
  12. KARDEGIC [Concomitant]
     Active Substance: ASPIRIN LYSINE
     Dosage: 75 MG, DAILY
  13. CYMBALTA [Concomitant]
     Active Substance: DULOXETINE HYDROCHLORIDE
     Dosage: 60 MG, 1X/DAY, EVENING
  14. METFORMIN [Concomitant]
     Active Substance: METFORMIN HYDROCHLORIDE
     Dosage: 1000 MG, 3X/DAY, MORNING, MIDDAY, EVENING

REACTIONS (3)
  - Glomerulonephropathy [Recovered/Resolved]
  - Purpura [Recovered/Resolved]
  - Proteinuria [Recovered/Resolved]

NARRATIVE: CASE EVENT DATE: 20160909
